FAERS Safety Report 7107794-5 (Version None)
Quarter: 2010Q4

REPORT INFORMATION
  Report Type: 
  Country: None (occurrence: None)
  Receive Date: 20101117
  Receipt Date: 20101111
  Transmission Date: 20110411
  Serious: Yes (Life-Threatening, Other)
  Sender: FDA-Public Use
  Company Number: PHHY2010MX76957

PATIENT
  Age: 72 Year
  Sex: Male

DRUGS (5)
  1. TASIGNA [Suspect]
     Indication: CHRONIC MYELOID LEUKAEMIA
     Dosage: 800 MG, DAILY
     Route: 048
     Dates: start: 20070703
  2. PARACETAMOL [Concomitant]
     Indication: MIGRAINE
     Dosage: 3 DF, DAILY
     Dates: start: 20000101
  3. CLARITIN [Concomitant]
     Indication: RASH
     Dosage: 2 TABLETS (10MG) DAILY
     Route: 048
     Dates: start: 20080101
  4. GLIBENCLAMIDE [Concomitant]
     Indication: DIABETES MELLITUS
     Dosage: 3 TABLETS (5MG) DAILY
     Route: 048
     Dates: start: 20060101
  5. BUTYLSCOPOLAMIN [Concomitant]
     Indication: COLITIS
     Dosage: 3 TABLETS (10MG) DAILY
     Dates: start: 20050101

REACTIONS (7)
  - ACUTE MYOCARDIAL INFARCTION [None]
  - ARRHYTHMIA [None]
  - CORONARY ARTERY DISEASE [None]
  - DYSPNOEA [None]
  - FATIGUE [None]
  - SUPRAVENTRICULAR EXTRASYSTOLES [None]
  - TACHYCARDIA [None]
